FAERS Safety Report 19432315 (Version 1)
Quarter: 2021Q2

REPORT INFORMATION
  Report Type: Spontaneous
  Country: US (occurrence: US)
  Receive Date: 20210617
  Receipt Date: 20210617
  Transmission Date: 20210717
  Serious: No
  Sender: FDA-Public Use
  Company Number: US-CATALYST PHARMACEUTICALS, INC-2021CAT00218

PATIENT
  Sex: Male
  Weight: 78.02 kg

DRUGS (11)
  1. PYRIDOSTIGMINE [Concomitant]
     Active Substance: PYRIDOSTIGMINE
  2. DAILY PROBIOTICS [Concomitant]
  3. FIRDAPSE [Suspect]
     Active Substance: AMIFAMPRIDINE PHOSPHATE
     Indication: MYASTHENIC SYNDROME
     Dosage: 15 MG, 3X/DAY
     Route: 048
     Dates: start: 20190307
  4. CATAPLEX D [Concomitant]
  5. BENADRYL [Concomitant]
     Active Substance: DIPHENHYDRAMINE HYDROCHLORIDE
     Dosage: UNK, AS NEEDED
  6. FISH OIL [Concomitant]
     Active Substance: FISH OIL
  7. ST. JOHNS WORT [Concomitant]
     Active Substance: HYPERICUM PERFORATUM WHOLE
  8. ZINC. [Concomitant]
     Active Substance: ZINC
  9. ASPIRIN. [Concomitant]
     Active Substance: ASPIRIN
  10. COD LIVER OIL [Concomitant]
     Active Substance: COD LIVER OIL
  11. SYNTHROID [Concomitant]
     Active Substance: LEVOTHYROXINE SODIUM

REACTIONS (2)
  - Haematuria [Not Recovered/Not Resolved]
  - Expired product administered [Not Recovered/Not Resolved]
